FAERS Safety Report 18197818 (Version 1)
Quarter: 2020Q3

REPORT INFORMATION
  Report Type: Report from Study
  Country: None (occurrence: CA)
  Receive Date: 20200826
  Receipt Date: 20200826
  Transmission Date: 20201103
  Serious: Yes (Hospitalization, Other)
  Sender: FDA-Public Use
  Company Number: CA-HLS-202001151

PATIENT
  Age: 72 Year
  Sex: Female

DRUGS (6)
  1. CLOZARIL [Suspect]
     Active Substance: CLOZAPINE
     Indication: SCHIZOPHRENIA
     Route: 048
  2. CEFTRIAXONE SODIUM FOR INJECTION BP [Concomitant]
     Active Substance: CEFTRIAXONE SODIUM
     Route: 065
  3. ARIPIPRAZOLE. [Concomitant]
     Active Substance: ARIPIPRAZOLE
     Dosage: NOT SPECIFIED
     Route: 065
  4. CLOZARIL [Suspect]
     Active Substance: CLOZAPINE
     Indication: HALLUCINATION, AUDITORY
     Route: 048
  5. CLOZARIL [Suspect]
     Active Substance: CLOZAPINE
     Indication: SCHIZOPHRENIA
     Dosage: 100.0 MILLIGRAM
     Route: 048
  6. CLOZARIL [Suspect]
     Active Substance: CLOZAPINE
     Indication: HALLUCINATION, AUDITORY
     Dosage: 100.0 MILLIGRAM
     Route: 048

REACTIONS (6)
  - White blood cell count decreased [Unknown]
  - Liver function test increased [Unknown]
  - Neutropenia [Unknown]
  - Urosepsis [Unknown]
  - Systemic inflammatory response syndrome [Unknown]
  - Platelet count increased [Unknown]
